FAERS Safety Report 8228791-2 (Version None)
Quarter: 2012Q1

REPORT INFORMATION
  Report Type: 
  Country: None (occurrence: None)
  Receive Date: 20120322
  Receipt Date: 20120316
  Transmission Date: 20120608
  Serious: Yes (Hospitalization)
  Sender: FDA-Public Use
  Company Number: US-GLAXOSMITHKLINE-A0969037A

PATIENT
  Age: 67 Year
  Sex: Female
  Weight: 36.4 kg

DRUGS (13)
  1. NONE [Concomitant]
  2. CHANTIX [Suspect]
     Indication: EX-TOBACCO USER
     Dosage: .5MG PER DAY
     Route: 048
     Dates: start: 20110901, end: 20120101
  3. HYDROCODONE BITARTRATE [Suspect]
     Indication: ARTHRITIS
     Dates: start: 20110101
  4. KLONOPIN [Suspect]
     Indication: NERVOUS SYSTEM DISORDER
     Dates: start: 20110101
  5. ADVAIR DISKUS 100/50 [Suspect]
     Indication: DYSPNOEA
     Route: 055
     Dates: start: 20070101
  6. METOCLOPRAMIDE [Suspect]
     Indication: GASTRIC DISORDER
     Dates: start: 20111001
  7. PROAIR HFA [Suspect]
     Indication: DYSPNOEA
     Route: 065
     Dates: start: 20070101
  8. ALBUTEROL SULFATE AND IPRATROPIUM BROMIDE [Suspect]
     Indication: DYSPNOEA
     Route: 065
     Dates: start: 20060101
  9. LEVOTHYROXINE SODIUM [Suspect]
     Indication: THYROIDECTOMY
     Dates: start: 19950101
  10. ASPIRIN [Suspect]
     Indication: PRODUCT USED FOR UNKNOWN INDICATION
     Dosage: 325MG PER DAY
     Route: 065
     Dates: start: 20111001
  11. SINGULAIR [Suspect]
     Indication: DYSPNOEA
  12. NEXIUM [Suspect]
     Indication: GASTRIC DISORDER
  13. CALCIUM CARBONATE [Suspect]
     Indication: PRODUCT USED FOR UNKNOWN INDICATION
     Route: 065
     Dates: start: 20110101

REACTIONS (6)
  - CEREBROVASCULAR ACCIDENT [None]
  - GAIT DISTURBANCE [None]
  - ABASIA [None]
  - MENTAL IMPAIRMENT [None]
  - DRUG INTERACTION [None]
  - APHASIA [None]
